FAERS Safety Report 16828258 (Version 2)
Quarter: 2019Q3

REPORT INFORMATION
  Report Type: Report from Study
  Country: US (occurrence: US)
  Receive Date: 20190919
  Receipt Date: 20190924
  Transmission Date: 20191005
  Serious: Yes (Hospitalization)
  Sender: FDA-Public Use
  Company Number: PHHO2019US009173

PATIENT
  Age: 53 Year
  Sex: Male

DRUGS (2)
  1. GSK1120212 [Suspect]
     Active Substance: TRAMETINIB
     Indication: NON-SMALL CELL LUNG CANCER
     Dosage: 1.5 MG, UNK
     Route: 048
     Dates: start: 20180914
  2. ZYKADIA [Suspect]
     Active Substance: CERITINIB
     Indication: NON-SMALL CELL LUNG CANCER
     Dosage: 300 MG, UNK
     Route: 048
     Dates: start: 20180914

REACTIONS (1)
  - Metastases to meninges [Unknown]

NARRATIVE: CASE EVENT DATE: 20190907
